FAERS Safety Report 5500579-2 (Version None)
Quarter: 2007Q4

REPORT INFORMATION
  Report Type: 
  Country: None (occurrence: None)
  Receive Date: 20071029
  Receipt Date: 20071019
  Transmission Date: 20080405
  Serious: Yes (Hospitalization)
  Sender: FDA-Public Use
  Company Number: GB-NOVOPROD-268668

PATIENT
  Sex: Female

DRUGS (3)
  1. NOVORAPID [Suspect]
     Indication: DRUG USE FOR UNKNOWN INDICATION
  2. LEVEMIR [Suspect]
     Indication: DRUG USE FOR UNKNOWN INDICATION
  3. PIRTION [Suspect]

REACTIONS (3)
  - DYSPNOEA [None]
  - ERYTHEMA [None]
  - PARAESTHESIA [None]
